FAERS Safety Report 18813758 (Version 2)
Quarter: 2021Q1

REPORT INFORMATION
  Report Type: Report from Study
  Country: AT (occurrence: AT)
  Receive Date: 20210201
  Receipt Date: 20210211
  Transmission Date: 20210419
  Serious: Yes (Hospitalization)
  Sender: FDA-Public Use
  Company Number: AT-AMGEN-AUTCT2021013499

PATIENT
  Age: 62 Year
  Sex: Female
  Weight: 62 kg

DRUGS (6)
  1. CARFILZOMIB [Suspect]
     Active Substance: CARFILZOMIB
     Indication: PLASMA CELL MYELOMA
     Dosage: 61 MILLIGRAM, PER CHEMO REGIM
     Route: 042
     Dates: start: 20190829
  2. VIROPEL [Concomitant]
     Indication: PROPHYLAXIS
     Dosage: 500 GRAM, QD
     Route: 048
     Dates: start: 20201015, end: 20210202
  3. LIDAPRIM [SULFAMETROLE;TRIMETHOPRIM] [Concomitant]
     Active Substance: SULFAMETROLE\TRIMETHOPRIM
     Indication: PROPHYLAXIS
     Dosage: 800?1600 GRAM THREE TIMES IN WEEK
     Route: 048
     Dates: start: 20200602, end: 20210112
  4. LENALIDOMIDE [Suspect]
     Active Substance: LENALIDOMIDE
     Dosage: 10 MILLIGRAM, PER CHEMO REGIM
     Route: 048
     Dates: start: 20201021
  5. DEXAMETHASONE. [Suspect]
     Active Substance: DEXAMETHASONE
     Indication: PLASMA CELL MYELOMA
     Dosage: 20 MILLIGRAM, PER CHEMO REGIM
     Route: 048
     Dates: start: 20190829
  6. LENALIDOMIDE [Suspect]
     Active Substance: LENALIDOMIDE
     Indication: PLASMA CELL MYELOMA
     Dosage: 25 MILLIGRAM, PER CHEMO REGIM
     Route: 048
     Dates: start: 20190829

REACTIONS (1)
  - Urticaria [Recovered/Resolved]

NARRATIVE: CASE EVENT DATE: 20201231
